FAERS Safety Report 10233879 (Version 1)
Quarter: 2014Q2

REPORT INFORMATION
  Report Type: Spontaneous
  Country: US (occurrence: US)
  Receive Date: 20140612
  Receipt Date: 20140612
  Transmission Date: 20141212
  Serious: Yes (Other)
  Sender: FDA-Public Use
  Company Number: US-ELI_LILLY_AND_COMPANY-US201406002297

PATIENT
  Sex: Female

DRUGS (1)
  1. EFFIENT [Suspect]
     Indication: PRODUCT USED FOR UNKNOWN INDICATION
     Dosage: UNK, UNKNOWN
     Route: 065

REACTIONS (3)
  - Head injury [Recovered/Resolved]
  - Fall [Recovered/Resolved]
  - Wound haemorrhage [Recovered/Resolved]
